FAERS Safety Report 9166087 (Version 4)
Quarter: 2014Q2

REPORT INFORMATION
  Report Type: Report from Study
  Country: FR (occurrence: FR)
  Receive Date: 20130315
  Receipt Date: 20140430
  Transmission Date: 20141212
  Serious: Yes (Hospitalization)
  Sender: FDA-Public Use
  Company Number: FR-ROCHE-1200867

PATIENT
  Age: 47 Year
  Sex: Male

DRUGS (6)
  1. PEG-INTERFERON ALFA 2A [Suspect]
     Indication: HEPATITIS C
     Route: 058
     Dates: start: 20121119, end: 20130429
  2. RIBAVIRIN [Suspect]
     Indication: HEPATITIS C
     Route: 048
     Dates: start: 20121119, end: 20130505
  3. INCIVO [Suspect]
     Indication: HEPATITIS C
     Route: 048
     Dates: start: 20121119, end: 20130210
  4. BROMAZEPAM [Concomitant]
     Indication: ANXIETY
     Route: 065
  5. VALPROMIDE [Concomitant]
     Indication: AFFECTIVE DISORDER
     Route: 065
  6. SUBUTEX [Concomitant]
     Route: 048

REACTIONS (3)
  - General physical health deterioration [Recovered/Resolved]
  - Depression [Recovered/Resolved]
  - Anaemia [Recovered/Resolved]
